FAERS Safety Report 8777139 (Version 1)
Quarter: 2012Q4

REPORT INFORMATION
  Report Type: 
  Country: CN (occurrence: CN)
  Receive Date: 20120911
  Receipt Date: 20120911
  Transmission Date: 20130627
  Serious: Yes (Other)
  Sender: FDA-Public Use
  Company Number: CN-ABBOTT-12P-035-0978130-00

PATIENT
  Age: 35 Year
  Sex: Female

DRUGS (2)
  1. VALPROATE SODIUM [Suspect]
     Route: 048
     Dates: start: 20000101, end: 20100101
  2. CARBAMAZEPINE [Concomitant]
     Indication: PRODUCT USED FOR UNKNOWN INDICATION

REACTIONS (1)
  - Cognitive disorder [Unknown]
